FAERS Safety Report 19997273 (Version 1)
Quarter: 2021Q4

REPORT INFORMATION
  Report Type: Spontaneous
  Country: GB (occurrence: GB)
  Receive Date: 20211026
  Receipt Date: 20211026
  Transmission Date: 20220303
  Serious: Yes (Hospitalization)
  Sender: FDA-Public Use
  Company Number: None

PATIENT
  Age: 84 Year
  Sex: Male

DRUGS (7)
  1. ALENDRONATE SODIUM [Suspect]
     Active Substance: ALENDRONATE SODIUM
     Dosage: 70 MILLIGRAM, QW
  2. ABIRATERONE. [Suspect]
     Active Substance: ABIRATERONE ACETATE
     Dosage: OM
  3. PREDNISOLONE [Suspect]
     Active Substance: PREDNISOLONE
     Dosage: OM
  4. CETIRIZINE [Concomitant]
     Active Substance: CETIRIZINE HYDROCHLORIDE
     Dosage: 10 MILLIGRAM, QD
     Route: 048
  5. DECAPEPTYL (ACETATE) [Concomitant]
     Active Substance: TRIPTORELIN ACETATE
     Dosage: LAST HAD 20/01/21, NEXT DUE 7/7/21
  6. PARAFFIN WHITE [Concomitant]
     Dosage: UNK
  7. MINERAL OIL [Concomitant]
     Active Substance: MINERAL OIL
     Dosage: UNK

REACTIONS (1)
  - Oedema [Unknown]
